FAERS Safety Report 9095513 (Version 1)
Quarter: 2013Q1

REPORT INFORMATION
  Report Type: Spontaneous
  Country: GB (occurrence: None)
  Receive Date: 20130123
  Receipt Date: 20130123
  Transmission Date: 20140127
  Serious: Yes (Other)
  Sender: FDA-Public Use
  Company Number: 2012HINREG0098

PATIENT
  Sex: Female

DRUGS (3)
  1. LEVETIRACETAM (LEVETIRACETAM) UNKNOWN [Suspect]
     Indication: PRODUCT USED FOR UNKNOWN INDICATION
  2. LAMOTRIGINE (LAMOTRIGINE) [Suspect]
  3. DICLOFENAC SODIUM (DICLOFENAC) [Suspect]

REACTIONS (2)
  - Hypertension [None]
  - Weight increased [None]
